FAERS Safety Report 9785704 (Version 4)
Quarter: 2014Q3

REPORT INFORMATION
  Report Type: Spontaneous
  Country: US (occurrence: US)
  Receive Date: 20131227
  Receipt Date: 20140829
  Transmission Date: 20150326
  Serious: Yes (Hospitalization, Other)
  Sender: FDA-Public Use
  Company Number: US-009507513-1312USA011299

PATIENT
  Sex: Female

DRUGS (1)
  1. NUVARING [Suspect]
     Active Substance: ETHINYL ESTRADIOL\ETONOGESTREL
     Indication: CONTRACEPTION
     Dosage: UNK
     Route: 067
     Dates: start: 20090421, end: 20091229

REACTIONS (9)
  - Presyncope [Unknown]
  - Bronchitis [Unknown]
  - Hypoaesthesia [Recovering/Resolving]
  - Maternal exposure before pregnancy [Unknown]
  - Uterine dilation and curettage [Unknown]
  - Pulmonary embolism [Unknown]
  - Paraesthesia [Recovering/Resolving]
  - Deep vein thrombosis [Unknown]
  - Fall [Unknown]

NARRATIVE: CASE EVENT DATE: 200906
